FAERS Safety Report 25029302 (Version 5)
Quarter: 2025Q4

REPORT INFORMATION
  Report Type: Report from Study
  Country: CA (occurrence: CA)
  Receive Date: 20250303
  Receipt Date: 20251006
  Transmission Date: 20260119
  Serious: Yes (Other)
  Sender: UCB
  Company Number: CA-UCBSA-2025011026

PATIENT
  Age: 48 Year
  Sex: Male
  Weight: 86.168 kg

DRUGS (9)
  1. CERTOLIZUMAB PEGOL [Suspect]
     Active Substance: CERTOLIZUMAB PEGOL
     Indication: Ankylosing spondylitis
     Dosage: 400 MILLIGRAM, EV 2 WEEKS(QOW)
     Route: 058
     Dates: start: 20241112
  2. CERTOLIZUMAB PEGOL [Suspect]
     Active Substance: CERTOLIZUMAB PEGOL
     Dosage: 200 MILLIGRAM, EV 2 WEEKS(QOW)
     Route: 058
     Dates: end: 20250121
  3. CERTOLIZUMAB PEGOL [Suspect]
     Active Substance: CERTOLIZUMAB PEGOL
     Dosage: 200 MILLIGRAM, EV 2 WEEKS(QOW)
     Route: 058
     Dates: start: 20250312, end: 20250929
  4. CETIRIZINE HYDROCHLORIDE [Concomitant]
     Active Substance: CETIRIZINE HYDROCHLORIDE
     Indication: Product used for unknown indication
     Dosage: UNK, AS NEEDED (PRN)
  5. SIMPONI [Concomitant]
     Active Substance: GOLIMUMAB
     Indication: Product used for unknown indication
     Dosage: UNK
  6. CELECOXIB [Concomitant]
     Active Substance: CELECOXIB
     Indication: Product used for unknown indication
     Dosage: UNK, AS NEEDED (PRN)
  7. CYCLOBENZAPRINE [Concomitant]
     Active Substance: CYCLOBENZAPRINE
     Indication: Myalgia
  8. ALBUTEROL [Concomitant]
     Active Substance: ALBUTEROL
     Indication: Product used for unknown indication
     Dosage: UNK
  9. IMMUGEN [ECHINACEA PURPUREA] [Concomitant]
     Indication: Product used for unknown indication
     Dosage: UNK

REACTIONS (8)
  - Pulmonary oedema [Unknown]
  - Ankylosing spondylitis [Unknown]
  - Feeling abnormal [Unknown]
  - Asthma [Unknown]
  - Hypersensitivity [Unknown]
  - Inappropriate schedule of product administration [Unknown]
  - Intentional dose omission [Unknown]
  - Drug ineffective [Unknown]

NARRATIVE: CASE EVENT DATE: 20250201
